FAERS Safety Report 8859263 (Version 1)
Quarter: 2012Q4

REPORT INFORMATION
  Report Type: Spontaneous
  Country: CA (occurrence: None)
  Receive Date: 20121022
  Receipt Date: 20121022
  Transmission Date: 20130627
  Serious: Yes (Other)
  Sender: FDA-Public Use
  Company Number: 2012AP003390

PATIENT
  Age: 49 Year
  Sex: Male

DRUGS (2)
  1. AMIODARONE [Suspect]
     Indication: ATRIAL FLUTTER
  2. SOTALOL [Concomitant]

REACTIONS (4)
  - Hyperthyroidism [None]
  - Thyroiditis [None]
  - Oedema peripheral [None]
  - Hyperthyroidism [None]
